FAERS Safety Report 6682658-X (Version None)
Quarter: 2010Q2

REPORT INFORMATION
  Report Type: 
  Country: None (occurrence: None)
  Receive Date: 20100415
  Receipt Date: 20100413
  Transmission Date: 20101027
  Serious: Yes (Other)
  Sender: FDA-Public Use
  Company Number: US-BRISTOL-MYERS SQUIBB COMPANY-15059546

PATIENT
  Age: 64 Year
  Sex: Female
  Weight: 48 kg

DRUGS (4)
  1. ERBITUX [Suspect]
     Indication: OROPHARYNGEAL CANCER STAGE UNSPECIFIED
     Dosage: DURATION 2.5 MONTHS
  2. TAXOL [Suspect]
  3. CARBOPLATIN [Suspect]
  4. COUMADIN [Suspect]

REACTIONS (1)
  - CEREBROVASCULAR ACCIDENT [None]
